FAERS Safety Report 16328554 (Version 1)
Quarter: 2019Q2

REPORT INFORMATION
  Report Type: Spontaneous
  Country: IT (occurrence: IT)
  Receive Date: 20190518
  Receipt Date: 20190518
  Transmission Date: 20190711
  Serious: Yes (Death, Hospitalization, Other)
  Sender: FDA-Public Use
  Company Number: PHHY2019IT112045

PATIENT
  Age: 57 Year
  Sex: Male

DRUGS (6)
  1. WARFARIN [Concomitant]
     Active Substance: WARFARIN
     Indication: PRODUCT USED FOR UNKNOWN INDICATION
     Dosage: UNK
     Route: 065
  2. FUROSEMIDE. [Concomitant]
     Active Substance: FUROSEMIDE
     Indication: PRODUCT USED FOR UNKNOWN INDICATION
     Dosage: UNK
     Route: 042
  3. FUROSEMIDE. [Concomitant]
     Active Substance: FUROSEMIDE
     Dosage: 25 MG, BID
     Route: 065
  4. ALLOPURINOL. [Suspect]
     Active Substance: ALLOPURINOL
     Indication: HYPERURICAEMIA
     Dosage: 150 MG, 1D
     Route: 065
  5. RANITIDINE. [Concomitant]
     Active Substance: RANITIDINE
     Indication: PRODUCT USED FOR UNKNOWN INDICATION
     Dosage: 1 UNK, QD, 1D (300 MD)
     Route: 065
  6. BISOPROLOL [Concomitant]
     Active Substance: BISOPROLOL
     Indication: PRODUCT USED FOR UNKNOWN INDICATION
     Dosage: 5 MG, BID
     Route: 065

REACTIONS (39)
  - Cytomegalovirus infection [Fatal]
  - Hepatic function abnormal [Fatal]
  - Nail dystrophy [Fatal]
  - Thrombocytopenia [Fatal]
  - Drug reaction with eosinophilia and systemic symptoms [Fatal]
  - Respiratory failure [Fatal]
  - Muscular weakness [Fatal]
  - Generalised oedema [Fatal]
  - Leukocytosis [Fatal]
  - Cardiac arrest [Fatal]
  - Sepsis [Fatal]
  - Endocarditis staphylococcal [Fatal]
  - Face oedema [Fatal]
  - Rash maculo-papular [Fatal]
  - Epstein-Barr virus infection [Fatal]
  - Productive cough [Fatal]
  - T-lymphocyte count abnormal [Fatal]
  - Renal impairment [Fatal]
  - Pyrexia [Fatal]
  - Endocarditis [Fatal]
  - Dermatitis [Fatal]
  - Multi-organ disorder [Fatal]
  - Exocrine pancreatic function test abnormal [Fatal]
  - Dermatitis herpetiformis [Fatal]
  - Human herpesvirus 8 infection [Fatal]
  - Blood gases abnormal [Fatal]
  - Lymphadenopathy [Fatal]
  - Pneumonia herpes viral [Fatal]
  - Dyspnoea [Fatal]
  - Neuromyopathy [Fatal]
  - Eye irritation [Fatal]
  - Staphylococcal infection [Fatal]
  - Medical device site infection [Fatal]
  - Anaemia [Fatal]
  - Interstitial lung disease [Fatal]
  - Human herpesvirus 6 infection [Fatal]
  - Confusional state [Fatal]
  - Eosinophilia [Fatal]
  - Dermatitis exfoliative generalised [Fatal]

NARRATIVE: CASE EVENT DATE: 201612
